FAERS Safety Report 4518298-8 (Version None)
Quarter: 2004Q4

REPORT INFORMATION
  Report Type: 
  Country: None (occurrence: None)
  Receive Date: 20041202
  Receipt Date: 20041123
  Transmission Date: 20050328
  Serious: Yes (Other)
  Sender: FDA-Public Use
  Company Number: 2004097884

PATIENT
  Age: 80 Year
  Sex: Female
  Weight: 63.5036 kg

DRUGS (17)
  1. LIPITOR [Suspect]
     Indication: BLOOD CHOLESTEROL
     Dosage: 20 MG (20 MG, 1 IN 1 D), ORAL
     Route: 048
     Dates: start: 20040401
  2. LEVOTHYROXINE SODIUM [Concomitant]
  3. CETIRIZINE HCL [Concomitant]
  4. ALL OTHER THERAPEUTIC PRODUCTS (ALL OTHER THERAPEUTIC PRODUCTS) [Concomitant]
  5. ASCORBIC ACID [Concomitant]
  6. ACETYLSALICYLIC ACIDI (ACETYLSALICYLIC ACID) [Concomitant]
  7. NICOTINIC ACID [Concomitant]
  8. GINKGO BILOBA (GINKGO BILOBA) [Concomitant]
  9. CALCIUM WITH VITAMIN D (CALCIUM PHOSPHATE, CALCIUM SODIUM LACTATE, ERG [Concomitant]
  10. B-KOMPLEX ^LECIVA^ (CALCIUM PANTOTHENATE, NICOTINAMIDE, PYRIDOXINE HYD [Concomitant]
  11. SERTRALINE HCL [Concomitant]
  12. MONTELUKAST (MONTELUKAST) [Concomitant]
  13. TOCOPHEROL CONCENTRATE CAP [Concomitant]
  14. ZINC (ZINC) [Concomitant]
  15. OMEGA-3 TRIGLYCERIDES (OMEGA-3 TRIGLYCERIDES) [Concomitant]
  16. RANITIDINE [Concomitant]
  17. FOLIC ACID [Concomitant]

REACTIONS (6)
  - APRAXIA [None]
  - ASTHENIA [None]
  - DECREASED ACTIVITY [None]
  - HYPOKINESIA [None]
  - SENSATION OF HEAVINESS [None]
  - THERAPY NON-RESPONDER [None]
